FAERS Safety Report 11309286 (Version 2)
Quarter: 2015Q3

REPORT INFORMATION
  Report Type: Spontaneous
  Country: US (occurrence: US)
  Receive Date: 20150724
  Receipt Date: 20150827
  Transmission Date: 20151125
  Serious: Yes (Other)
  Sender: FDA-Public Use
  Company Number: US-BEH-2015052566

PATIENT
  Age: 35 Year
  Sex: Female

DRUGS (3)
  1. CORTICOSTEROIDS [Concomitant]
     Active Substance: CORTICOSTEROID NOS
     Route: 042
  2. IVIG [Suspect]
     Active Substance: HUMAN IMMUNOGLOBULIN G
     Indication: PETECHIAE
     Route: 042
  3. IVIG [Suspect]
     Active Substance: HUMAN IMMUNOGLOBULIN G
     Indication: PETECHIAE
     Route: 042

REACTIONS (5)
  - Acute kidney injury [Recovered/Resolved]
  - Complications of transplanted liver [Recovered/Resolved]
  - Fatigue [Recovered/Resolved]
  - Haemolytic anaemia [Recovered/Resolved]
  - Jaundice [Recovered/Resolved]
